FAERS Safety Report 10485521 (Version 1)
Quarter: 2014Q3

REPORT INFORMATION
  Report Type: Spontaneous
  Country: CH (occurrence: CH)
  Receive Date: 20140930
  Receipt Date: 20140930
  Transmission Date: 20150326
  Serious: Yes (Hospitalization)
  Sender: FDA-Public Use
  Company Number: PHHY2014CH126071

PATIENT
  Age: 4 Month
  Sex: Female
  Weight: 6.5 kg

DRUGS (1)
  1. VOLTAREN [Suspect]
     Active Substance: DICLOFENAC SODIUM
     Indication: PHARYNGITIS
     Dosage: 5 DROPS (2.5MG), TWICE DAILY
     Route: 048
     Dates: start: 20131204, end: 20131205

REACTIONS (2)
  - Oedema peripheral [Recovered/Resolved]
  - Cyanosis [Recovered/Resolved]

NARRATIVE: CASE EVENT DATE: 20131205
